FAERS Safety Report 9449795 (Version 1)
Quarter: 2013Q3

REPORT INFORMATION
  Report Type: Spontaneous
  Country: SE (occurrence: SE)
  Receive Date: 20130809
  Receipt Date: 20130809
  Transmission Date: 20140515
  Serious: Yes (Hospitalization)
  Sender: FDA-Public Use
  Company Number: SE-JNJFOC-20130718907

PATIENT
  Age: 84 Year
  Sex: Male

DRUGS (2)
  1. REMINYL [Suspect]
     Indication: DEMENTIA ALZHEIMER^S TYPE
     Route: 065
  2. TROMBYL [Concomitant]
     Indication: PRODUCT USED FOR UNKNOWN INDICATION
     Route: 065

REACTIONS (4)
  - Aphasia [Recovered/Resolved]
  - Somnolence [Recovered/Resolved]
  - Hallucination [Recovered/Resolved]
  - Confusional state [Recovered/Resolved]
